FAERS Safety Report 5295248-0 (Version None)
Quarter: 2007Q2

REPORT INFORMATION
  Report Type: 
  Country: None (occurrence: None)
  Receive Date: 20070412
  Receipt Date: 20070405
  Transmission Date: 20071010
  Serious: Yes (Other)
  Sender: FDA-Public Use
  Company Number: US-PFIZER INC-2006134131

PATIENT
  Sex: Male

DRUGS (3)
  1. CELEBREX [Suspect]
     Indication: PAIN
     Route: 048
     Dates: start: 20010501, end: 20020601
  2. BEXTRA [Suspect]
     Indication: PAIN
     Route: 048
     Dates: start: 20020101, end: 20020615
  3. VIOXX [Suspect]
     Route: 048
     Dates: start: 20010701, end: 20020531

REACTIONS (3)
  - CARDIOVASCULAR DISORDER [None]
  - DEPRESSION [None]
  - MYOCARDIAL INFARCTION [None]
